FAERS Safety Report 19804222 (Version 1)
Quarter: 2021Q3

REPORT INFORMATION
  Report Type: Spontaneous
  Country: US (occurrence: US)
  Receive Date: 20210908
  Receipt Date: 20210908
  Transmission Date: 20211014
  Serious: No
  Sender: FDA-Public Use
  Company Number: US-FARMAPROD-202104-0508

PATIENT
  Sex: Female

DRUGS (7)
  1. OXERVATE [Suspect]
     Active Substance: CENEGERMIN-BKBJ
     Indication: ULCERATIVE KERATITIS
     Route: 047
     Dates: start: 20210405, end: 20210531
  2. REFRESH CLASSIC [Concomitant]
     Active Substance: POLYVINYL ALCOHOL\POVIDONE
  3. OXERVATE [Suspect]
     Active Substance: CENEGERMIN-BKBJ
     Indication: NEUROTROPHIC KERATOPATHY
     Route: 047
     Dates: start: 20210607
  4. PREDNISOLONE. [Concomitant]
     Active Substance: PREDNISOLONE
     Dosage: 15 MG/5 ML
  5. TOBRAMYCIN. [Concomitant]
     Active Substance: TOBRAMYCIN
  6. RESTASIS [Concomitant]
     Active Substance: CYCLOSPORINE
  7. ZIRGAN [Concomitant]
     Active Substance: GANCICLOVIR

REACTIONS (10)
  - Off label use [Unknown]
  - Lacrimation increased [Unknown]
  - Ocular hyperaemia [Unknown]
  - Facial pain [Unknown]
  - Eye swelling [Unknown]
  - Headache [Unknown]
  - Eye pain [Unknown]
  - Erythema of eyelid [Unknown]
  - Periorbital pain [Unknown]
  - Rhinalgia [Unknown]
